FAERS Safety Report 8245193-3 (Version None)
Quarter: 2012Q1

REPORT INFORMATION
  Report Type: 
  Country: None (occurrence: None)
  Receive Date: 20120329
  Receipt Date: 20120315
  Transmission Date: 20120608
  Serious: Yes (Other)
  Sender: FDA-Public Use
  Company Number: US-ROCHE-1022327

PATIENT
  Sex: Male
  Weight: 74.91 kg

DRUGS (4)
  1. TRETINOIN [Concomitant]
  2. TETRACYCLINE [Concomitant]
  3. ACCUTANE [Suspect]
     Indication: ACNE
     Route: 048
     Dates: start: 19870101, end: 19900101
  4. FLAGYL [Concomitant]

REACTIONS (6)
  - LIP DRY [None]
  - CROHN'S DISEASE [None]
  - HEAD INJURY [None]
  - COLITIS ULCERATIVE [None]
  - PERIRECTAL ABSCESS [None]
  - BACK PAIN [None]
